FAERS Safety Report 10695041 (Version 1)
Quarter: 2015Q1

REPORT INFORMATION
  Report Type: Spontaneous
  Country: US (occurrence: US)
  Receive Date: 20150107
  Receipt Date: 20150107
  Transmission Date: 20150721
  Serious: Yes (Hospitalization, Other)
  Sender: FDA-Public Use
  Company Number: US-ABBVIE-15P-163-1328754-00

PATIENT
  Age: 76 Year
  Sex: Male

DRUGS (3)
  1. ANDROGEL [Suspect]
     Active Substance: TESTOSTERONE
     Indication: BLOOD TESTOSTERONE DECREASED
     Route: 061
     Dates: start: 200409, end: 200410
  2. ANDROGEL [Suspect]
     Active Substance: TESTOSTERONE
     Route: 061
     Dates: start: 200601, end: 201407
  3. DEPO-TESTOSTERONE [Suspect]
     Active Substance: TESTOSTERONE CYPIONATE
     Indication: BLOOD TESTOSTERONE DECREASED
     Route: 065
     Dates: start: 200410, end: 200512

REACTIONS (13)
  - Visual impairment [Unknown]
  - Anhedonia [Unknown]
  - Asthenia [Unknown]
  - Ischaemic stroke [Unknown]
  - Transient ischaemic attack [Unknown]
  - Polycythaemia [Unknown]
  - Cerebral infarction [Unknown]
  - Pain [Unknown]
  - Anxiety [Unknown]
  - Fear [Unknown]
  - Social problem [Unknown]
  - Injury [Unknown]
  - Off label use [Unknown]

NARRATIVE: CASE EVENT DATE: 20120121
